FAERS Safety Report 10530350 (Version 2)
Quarter: 2014Q4

REPORT INFORMATION
  Report Type: Spontaneous
  Country: US (occurrence: US)
  Receive Date: 20141021
  Receipt Date: 20141105
  Transmission Date: 20150528
  Serious: Yes (Other)
  Sender: FDA-Public Use
  Company Number: US-DRREDDYS-USA/USA/14/0043735

PATIENT
  Age: 57 Year
  Sex: Female

DRUGS (10)
  1. BUMETANIDE. [Concomitant]
     Active Substance: BUMETANIDE
     Indication: PRODUCT USED FOR UNKNOWN INDICATION
     Route: 065
  2. ZENATANE [Suspect]
     Active Substance: ISOTRETINOIN
     Indication: KERATOSIS FOLLICULAR
     Route: 048
     Dates: start: 20140919
  3. NYSTATIN. [Concomitant]
     Active Substance: NYSTATIN
     Indication: SKIN DISORDER
     Route: 065
  4. ZENATANE [Suspect]
     Active Substance: ISOTRETINOIN
     Indication: PEMPHIGUS
     Route: 048
     Dates: start: 20130516
  5. ZENATANE [Suspect]
     Active Substance: ISOTRETINOIN
     Indication: BENIGN FAMILIAL PEMPHIGUS
  6. ZENATANE [Suspect]
     Active Substance: ISOTRETINOIN
     Indication: PEMPHIGOID
  7. DOXYCYCLINE. [Concomitant]
     Active Substance: DOXYCYCLINE
     Indication: PRODUCT USED FOR UNKNOWN INDICATION
     Route: 065
  8. NEXIUM [Concomitant]
     Active Substance: ESOMEPRAZOLE MAGNESIUM
     Indication: PRODUCT USED FOR UNKNOWN INDICATION
     Route: 065
  9. METOLAZONE. [Concomitant]
     Active Substance: METOLAZONE
     Indication: PRODUCT USED FOR UNKNOWN INDICATION
     Route: 065
  10. CALCIUM D3 [Concomitant]
     Active Substance: CALCIUM\CHOLECALCIFEROL
     Indication: PRODUCT USED FOR UNKNOWN INDICATION
     Route: 065

REACTIONS (11)
  - Epistaxis [Recovered/Resolved]
  - Skin exfoliation [Recovered/Resolved]
  - Oropharyngeal pain [Recovered/Resolved]
  - Stress [Recovered/Resolved]
  - Chapped lips [Recovered/Resolved]
  - Fungal skin infection [Recovered/Resolved]
  - Diarrhoea [Recovered/Resolved]
  - Skin burning sensation [Recovered/Resolved]
  - Menstruation irregular [Recovered/Resolved]
  - Myalgia [Recovered/Resolved]
  - Headache [Recovered/Resolved]

NARRATIVE: CASE EVENT DATE: 201409
